FAERS Safety Report 7875646-9 (Version None)
Quarter: 2011Q4

REPORT INFORMATION
  Report Type: 
  Country: None (occurrence: None)
  Receive Date: 20111031
  Receipt Date: 20110817
  Transmission Date: 20120403
  Serious: Yes (Death)
  Sender: FDA-Public Use
  Company Number: JP-AMGEN-JPNSP2011033596

PATIENT
  Age: 83 Year
  Sex: Male

DRUGS (10)
  1. INTRAFAT [Concomitant]
     Dosage: 250 ML, QD
     Dates: start: 20110531, end: 20110607
  2. CINACALCET HYDROCHLORIDE [Suspect]
     Dosage: 25 MG, UNK
     Route: 048
     Dates: start: 20110525, end: 20110608
  3. ASPIRIN [Concomitant]
     Dosage: 100 MG, QD
     Route: 048
     Dates: start: 20100402, end: 20110608
  4. RISUMIC [Concomitant]
     Dosage: 10 MG, UNK
     Route: 048
     Dates: start: 20110603, end: 20110608
  5. CINACALCET HYDROCHLORIDE [Suspect]
     Indication: HYPERPARATHYROIDISM SECONDARY
     Dosage: UNK
     Route: 048
     Dates: start: 20101227, end: 20110127
  6. SOLDEM 1 [Concomitant]
     Dosage: 200 ML, QD
     Dates: start: 20110607, end: 20110608
  7. CALTAN OD [Concomitant]
     Dosage: 500 MG, TID
     Route: 048
     Dates: start: 20110204, end: 20110608
  8. SOLDEM 1 [Concomitant]
     Dosage: 500 ML, QD
     Dates: start: 20110531, end: 20110604
  9. LANSOPRAZOLE [Concomitant]
     Dosage: 15 MG, QD
     Route: 048
     Dates: start: 20100402, end: 20110608
  10. BROTIZOLAN [Concomitant]
     Dosage: 0.25 MG, QD
     Route: 048
     Dates: start: 20100402, end: 20110608

REACTIONS (2)
  - HEPATIC FUNCTION ABNORMAL [None]
  - ACUTE RESPIRATORY FAILURE [None]
